FAERS Safety Report 21843813 (Version 1)
Quarter: 2023Q1

REPORT INFORMATION
  Report Type: Spontaneous
  Country: US (occurrence: None)
  Receive Date: 20230109
  Receipt Date: 20230109
  Transmission Date: 20230417
  Serious: No
  Sender: FDA-Public Use
  Company Number: None

PATIENT
  Sex: Female
  Weight: 89.81 kg

DRUGS (2)
  1. ORENCIA [Suspect]
     Active Substance: ABATACEPT
     Indication: Rheumatoid arthritis
     Dosage: FREQUENCY : WEEKLY;?
     Route: 058
     Dates: start: 201909
  2. ORENCIA [Suspect]
     Active Substance: ABATACEPT
     Indication: Rheumatoid factor positive

REACTIONS (3)
  - Joint prosthesis user [None]
  - Complication associated with device [None]
  - Therapy interrupted [None]
